FAERS Safety Report 6275482-3 (Version None)
Quarter: 2009Q3

REPORT INFORMATION
  Report Type: 
  Country: None (occurrence: None)
  Receive Date: 20090721
  Receipt Date: 20090714
  Transmission Date: 20100115
  Serious: Yes (Other)
  Sender: FDA-Public Use
  Company Number: US-ASTRAZENECA-2008UW06941

PATIENT
  Age: 720 Month
  Sex: Female
  Weight: 77.1 kg

DRUGS (5)
  1. SEROQUEL [Suspect]
     Indication: SLEEP DISORDER
     Route: 048
     Dates: start: 20010901, end: 20070701
  2. SEROQUEL [Suspect]
     Indication: BIPOLAR DISORDER
     Route: 048
     Dates: start: 20010901, end: 20070701
  3. ZYPREXA [Concomitant]
     Dates: start: 19860101
  4. LITHIUM [Concomitant]
     Dates: start: 19990101
  5. CLONAZEPAM [Concomitant]
     Dates: start: 20010101

REACTIONS (5)
  - BREAST CANCER [None]
  - DIABETES MELLITUS [None]
  - NECK INJURY [None]
  - NEOPLASM [None]
  - RENAL DISORDER [None]
